FAERS Safety Report 20797968 (Version 1)
Quarter: 2022Q2

REPORT INFORMATION
  Report Type: Spontaneous
  Country: US (occurrence: None)
  Receive Date: 20220506
  Receipt Date: 20220506
  Transmission Date: 20220721
  Serious: No
  Sender: FDA-Public Use
  Company Number: None

PATIENT
  Age: 51 Year
  Sex: Female
  Weight: 168.8 kg

DRUGS (7)
  1. ALECENSA [Suspect]
     Active Substance: ALECTINIB HYDROCHLORIDE
     Indication: Lung neoplasm malignant
     Dosage: FREQUENCY : TWICE A DAY;?
     Route: 048
     Dates: start: 202010
  2. ACETAMINOPHEN [Concomitant]
  3. ALGAL OMEGA-3 DHA [Concomitant]
  4. IBUPROFEN [Concomitant]
  5. LASIX [Concomitant]
  6. THRIVE FOR LIFE WOMEN [Concomitant]
  7. MULTIVITAMIN ADULT [Concomitant]

REACTIONS (1)
  - Bradycardia [None]
